FAERS Safety Report 17771562 (Version 3)
Quarter: 2020Q3

REPORT INFORMATION
  Report Type: Spontaneous
  Country: US (occurrence: US)
  Receive Date: 20200512
  Receipt Date: 20200817
  Transmission Date: 20201102
  Serious: No
  Sender: FDA-Public Use
  Company Number: US-PFIZER INC-2020146267

PATIENT
  Age: 13 Year
  Sex: Female
  Weight: 52.16 kg

DRUGS (4)
  1. GENOTROPIN [Suspect]
     Active Substance: SOMATROPIN
     Indication: TURNER^S SYNDROME
  2. GENOTROPIN [Suspect]
     Active Substance: SOMATROPIN
     Indication: CYTOGENETIC ABNORMALITY
     Dosage: 2.8 MG
  3. LISINOPRIL. [Concomitant]
     Active Substance: LISINOPRIL
     Indication: HYPERTENSION
     Dosage: UNK
  4. GENOTROPIN [Suspect]
     Active Substance: SOMATROPIN
     Indication: GROWTH HORMONE DEFICIENCY
     Dosage: 2.9 MG, DAILY

REACTIONS (4)
  - Product prescribing error [Unknown]
  - Product dose omission issue [Unknown]
  - Device leakage [Unknown]
  - Wrong technique in device usage process [Unknown]
